FAERS Safety Report 9325122 (Version 2)
Quarter: 2013Q2

REPORT INFORMATION
  Report Type: Spontaneous
  Country: CA (occurrence: CA)
  Receive Date: 20130603
  Receipt Date: 20130617
  Transmission Date: 20140414
  Serious: Yes (Hospitalization)
  Sender: FDA-Public Use
  Company Number: CA-B.I. PHARMACEUTICALS,INC./RIDGEFIELD-2013-CN-01016CN

PATIENT
  Sex: Female

DRUGS (1)
  1. AGGRENOX [Suspect]
     Dosage: 400 RT
     Route: 048

REACTIONS (1)
  - Movement disorder [Unknown]
